FAERS Safety Report 15705606 (Version 1)
Quarter: 2018Q4

REPORT INFORMATION
  Report Type: Spontaneous
  Country: US (occurrence: US)
  Receive Date: 20181210
  Receipt Date: 20181210
  Transmission Date: 20190205
  Serious: Yes (Other)
  Sender: FDA-Public Use
  Company Number: US-ELI_LILLY_AND_COMPANY-US201812000968

PATIENT
  Age: 71 Year
  Sex: Female

DRUGS (2)
  1. HUMALOG [Suspect]
     Active Substance: INSULIN LISPRO
     Dosage: UNK UNK, UNKNOWN
  2. HUMALOG [Suspect]
     Active Substance: INSULIN LISPRO
     Indication: TYPE 1 DIABETES MELLITUS
     Dosage: UNK UNK, UNKNOWN
     Dates: start: 1987

REACTIONS (6)
  - Blindness unilateral [Unknown]
  - Macular degeneration [Unknown]
  - Incorrect product administration duration [Unknown]
  - Blood glucose increased [Unknown]
  - Myocardial infarction [Unknown]
  - Macular oedema [Unknown]

NARRATIVE: CASE EVENT DATE: 20181201
